FAERS Safety Report 23531130 (Version 4)
Quarter: 2024Q1

REPORT INFORMATION
  Report Type: Spontaneous
  Country: JP (occurrence: JP)
  Receive Date: 20240216
  Receipt Date: 20240329
  Transmission Date: 20240409
  Serious: Yes (Hospitalization, Other)
  Sender: FDA-Public Use
  Company Number: JP-DSJP-DSJ-2024-106367

PATIENT
  Age: 50 Year
  Sex: Female

DRUGS (12)
  1. DENOSUMAB [Suspect]
     Active Substance: DENOSUMAB
     Indication: Bone giant cell tumour
     Dosage: 120 MG, ONCE EVERY 1 MO
     Route: 058
  2. FENTANYL [Concomitant]
     Active Substance: FENTANYL\FENTANYL CITRATE
     Indication: Pain
     Dosage: UNK
     Route: 065
  3. LYRICA [Concomitant]
     Active Substance: PREGABALIN
     Dosage: 3 DF, TID
     Route: 048
  4. TRIMEBUTINE [Concomitant]
     Active Substance: TRIMEBUTINE
     Dosage: 200 MG, TID
     Route: 048
  5. ETHYL LOFLAZEPATE [Concomitant]
     Active Substance: ETHYL LOFLAZEPATE
     Dosage: 1 MG, QD
     Route: 048
  6. NEUROTROPIN [Concomitant]
     Active Substance: NEUROTROPIN
     Dosage: 8 IU, BID
     Route: 048
  7. REFLEX [Concomitant]
     Active Substance: MIRTAZAPINE
     Dosage: 15 MG, QD
     Route: 048
  8. TRAMADOL [Concomitant]
     Active Substance: TRAMADOL\TRAMADOL HYDROCHLORIDE
     Dosage: 75 MG, TID
     Route: 048
  9. MOSAPRIDE CITRATE [Concomitant]
     Active Substance: MOSAPRIDE CITRATE
     Dosage: 5 MG, TID
     Route: 048
  10. ELDECALCITOL [Concomitant]
     Active Substance: ELDECALCITOL
     Dosage: 0.75 UG, QD
     Route: 048
  11. ONEDURO [Concomitant]
     Active Substance: FENTANYL
     Dosage: 0.84 MG, QD
     Dates: end: 20240214
  12. FENTANYL [Concomitant]
     Active Substance: FENTANYL\FENTANYL CITRATE
     Dosage: 1 MG, QD
     Dates: start: 20240214

REACTIONS (2)
  - Fall [Unknown]
  - Atypical femur fracture [Recovering/Resolving]

NARRATIVE: CASE EVENT DATE: 20240203
